FAERS Safety Report 8495346-4 (Version None)
Quarter: 2012Q3

REPORT INFORMATION
  Report Type: 
  Country: None (occurrence: None)
  Receive Date: 20120709
  Receipt Date: 20120703
  Transmission Date: 20120928
  Serious: Yes (Hospitalization)
  Sender: FDA-Public Use
  Company Number: US-BAYER-2012-067531

PATIENT
  Age: 20 Year
  Sex: Female
  Weight: 52.154 kg

DRUGS (7)
  1. OXYCODONE HCL [Concomitant]
  2. IMITREX [Concomitant]
  3. YASMIN [Suspect]
     Indication: CONTRACEPTION
  4. YAZ [Suspect]
  5. MOTRIN [Concomitant]
  6. DILAUDID [Concomitant]
  7. ZOFRAN [Concomitant]

REACTIONS (1)
  - SUPERIOR SAGITTAL SINUS THROMBOSIS [None]
